FAERS Safety Report 20172475 (Version 2)
Quarter: 2021Q4

REPORT INFORMATION
  Report Type: Spontaneous
  Country: US (occurrence: US)
  Receive Date: 20211210
  Receipt Date: 20211215
  Transmission Date: 20220304
  Serious: Yes (Other)
  Sender: FDA-Public Use
  Company Number: US-SUNOVION-2021SUN004579

PATIENT
  Sex: Male
  Weight: 91.156 kg

DRUGS (5)
  1. APTIOM [Suspect]
     Active Substance: ESLICARBAZEPINE ACETATE
     Indication: Seizure
     Dosage: UNK
     Route: 048
  2. APTIOM [Suspect]
     Active Substance: ESLICARBAZEPINE ACETATE
     Dosage: 800 MG, QD
     Route: 048
  3. APTIOM [Suspect]
     Active Substance: ESLICARBAZEPINE ACETATE
     Dosage: 800 MG, BID
     Route: 048
  4. CLOBAZAM [Suspect]
     Active Substance: CLOBAZAM
     Dosage: 15 MG, BID 1 AND HALF TABLETS
  5. VIMPAT [Concomitant]
     Active Substance: LACOSAMIDE
     Dosage: 200 MG, 1 IN MORNING 2 AT NIGHT

REACTIONS (8)
  - Cerebrovascular accident [Unknown]
  - Seizure [Recovered/Resolved]
  - Weight decreased [Recovered/Resolved]
  - Brain operation [Unknown]
  - Therapeutic product effect incomplete [Unknown]
  - Hyponatraemia [Unknown]
  - Labelled drug-drug interaction issue [Unknown]
  - Off label use [Unknown]
